FAERS Safety Report 5485143-6 (Version None)
Quarter: 2007Q4

REPORT INFORMATION
  Report Type: 
  Country: None (occurrence: None)
  Receive Date: 20071015
  Receipt Date: 20071002
  Transmission Date: 20080405
  Serious: Yes (Life-Threatening, Other)
  Sender: FDA-Public Use
  Company Number: GB-ABBOTT-07P-167-0416800-00

PATIENT
  Age: 18 Year
  Sex: Female

DRUGS (3)
  1. HUMIRA [Suspect]
     Indication: CROHN'S DISEASE
     Route: 058
     Dates: start: 20060401
  2. HUMIRA [Suspect]
     Route: 058
     Dates: start: 20060601
  3. HUMIRA [Suspect]
     Route: 058
     Dates: start: 20060601

REACTIONS (5)
  - ANASTOMOTIC ULCER [None]
  - APATHY [None]
  - CROHN'S DISEASE [None]
  - GASTROINTESTINAL STOMA COMPLICATION [None]
  - PROCTALGIA [None]
